FAERS Safety Report 20188687 (Version 1)
Quarter: 2021Q4

REPORT INFORMATION
  Report Type: Spontaneous
  Country: US (occurrence: US)
  Receive Date: 20211215
  Receipt Date: 20211215
  Transmission Date: 20220303
  Serious: Yes (Death, Hospitalization, Other)
  Sender: FDA-Public Use
  Company Number: US-AMGEN-USASP2021196023

PATIENT
  Sex: Male

DRUGS (8)
  1. RITUXIMAB [Suspect]
     Active Substance: RITUXIMAB
     Indication: Kidney transplant rejection
     Dosage: 800 MILLIGRAM. ONCE
     Route: 065
  2. BASILIXIMAB [Concomitant]
     Active Substance: BASILIXIMAB
  3. METHYLPREDNISOLONE [Concomitant]
     Active Substance: METHYLPREDNISOLONE
  4. MYCOPHENOLIC ACID [Concomitant]
     Active Substance: MYCOPHENOLIC ACID
     Dosage: 380 MILLIGRAM, BID
  5. PREDNISONE [Concomitant]
     Active Substance: PREDNISONE
     Dosage: 20 MILLIGRAM, QD
  6. BELATACEPT [Concomitant]
     Active Substance: BELATACEPT
     Dosage: 250 MILLIGRAM, QMO
  7. THYMOGLOBULIN [Concomitant]
     Active Substance: LAPINE T-LYMPHOCYTE IMMUNE GLOBULIN
     Dosage: UNK
  8. THYMOGLOBULIN [Concomitant]
     Active Substance: LAPINE T-LYMPHOCYTE IMMUNE GLOBULIN
     Dosage: 1.5 MG/KG, QD FOR 4 DAYS

REACTIONS (6)
  - Cardiac arrest [Fatal]
  - Human rhinovirus test positive [Unknown]
  - Cryptococcosis [Unknown]
  - Pneumonia cryptococcal [Unknown]
  - Drug effective for unapproved indication [Unknown]
  - Off label use [Unknown]
